FAERS Safety Report 21193036 (Version 2)
Quarter: 2022Q3

REPORT INFORMATION
  Report Type: Report from Study
  Country: IT (occurrence: IT)
  Receive Date: 20220810
  Receipt Date: 20220817
  Transmission Date: 20221027
  Serious: Yes (Hospitalization)
  Sender: FDA-Public Use
  Company Number: None

PATIENT
  Age: 7 Year
  Sex: Male
  Weight: 21 kg

DRUGS (1)
  1. RISPERDAL [Suspect]
     Active Substance: RISPERIDONE
     Indication: Autism spectrum disorder
     Dosage: ACCIDENTALLY ADMINISTERED 2.5 ML OF SYRUP INSTEAD OF 0.25 ML
     Route: 048
     Dates: start: 20220305, end: 20220305

REACTIONS (3)
  - Sopor [Recovering/Resolving]
  - Medication error [Unknown]
  - Wrong dose [Recovered/Resolved]

NARRATIVE: CASE EVENT DATE: 20220305
